FAERS Safety Report 5486931-2 (Version None)
Quarter: 2007Q4

REPORT INFORMATION
  Report Type: 
  Country: None (occurrence: None)
  Receive Date: 20071016
  Receipt Date: 20071010
  Transmission Date: 20080405
  Serious: Yes (Hospitalization)
  Sender: FDA-Public Use
  Company Number: AT-ASTRAZENECA-2007PK01947

PATIENT
  Age: 16294 Day
  Sex: Female
  Weight: 57 kg

DRUGS (3)
  1. ARIMIDEX [Suspect]
     Indication: BREAST CANCER
     Route: 048
     Dates: start: 20050802, end: 20070901
  2. ZOLADEX [Suspect]
     Indication: BREAST CANCER
     Route: 058
     Dates: start: 20050701, end: 20070901
  3. KEPPRA [Concomitant]
     Indication: EPILEPSY

REACTIONS (1)
  - SUBARACHNOID HAEMORRHAGE [None]
